FAERS Safety Report 23641589 (Version 1)
Quarter: 2024Q1

REPORT INFORMATION
  Report Type: Spontaneous
  Country: IN (occurrence: IN)
  Receive Date: 20240318
  Receipt Date: 20240318
  Transmission Date: 20240409
  Serious: Yes (Other)
  Sender: FDA-Public Use
  Company Number: IN-862174955-ML2024-01645

PATIENT
  Age: 19 Year
  Sex: Male

DRUGS (1)
  1. TOFACITINIB [Suspect]
     Active Substance: TOFACITINIB
     Indication: Product used for unknown indication

REACTIONS (2)
  - Acute cutaneous lupus erythematosus [Recovering/Resolving]
  - Toxic epidermal necrolysis [Recovered/Resolved]
